FAERS Safety Report 6310089-0 (Version None)
Quarter: 2009Q3

REPORT INFORMATION
  Report Type: 
  Country: None (occurrence: None)
  Receive Date: 20090814
  Receipt Date: 20090807
  Transmission Date: 20100115
  Serious: Yes (Hospitalization)
  Sender: FDA-Public Use
  Company Number: JP-CELGENEUS-087-C5013-09071873

PATIENT
  Sex: Female
  Weight: 49.7 kg

DRUGS (9)
  1. CC-5013 [Suspect]
     Indication: MULTIPLE MYELOMA
     Route: 048
     Dates: start: 20090714, end: 20090727
  2. DEXAMETHASONE [Suspect]
     Indication: MULTIPLE MYELOMA
     Route: 065
     Dates: start: 20090714, end: 20090717
  3. DEXAMETHASONE [Suspect]
     Route: 065
     Dates: start: 20090722, end: 20090725
  4. PACKED RED BLOOD CELL TRANSFUSION [Concomitant]
     Indication: DRUG USE FOR UNKNOWN INDICATION
     Dosage: 2 UNITS
     Route: 051
     Dates: start: 20090718
  5. DIHYDROCODEINE PHOSPHATE [Concomitant]
     Indication: COUGH
     Dosage: 2 PACKS
     Route: 065
     Dates: start: 20090726
  6. DIHYDROCODEINE PHOSPHATE [Concomitant]
     Dosage: 1 PACK
     Route: 048
     Dates: start: 20090726
  7. PAVLON [Concomitant]
     Dosage: 1 PACK
     Route: 048
     Dates: start: 20090726
  8. DILTIAZEM [Concomitant]
     Route: 048
     Dates: start: 20030101
  9. ASPIRIN [Concomitant]
     Indication: THROMBOSIS PROPHYLAXIS
     Route: 048
     Dates: start: 20090714

REACTIONS (1)
  - ORTHOSTATIC HYPOTENSION [None]
